FAERS Safety Report 7357997-X (Version None)
Quarter: 2011Q1

REPORT INFORMATION
  Report Type: 
  Country: None (occurrence: None)
  Receive Date: 20110317
  Receipt Date: 20110311
  Transmission Date: 20110831
  Serious: Yes (Death)
  Sender: FDA-Public Use
  Company Number: US-AMGEN-USASP2011014107

PATIENT
  Age: 67 Year
  Sex: Male

DRUGS (4)
  1. NPLATE [Suspect]
     Indication: THROMBOCYTOPENIA
     Dosage: UNK
     Dates: start: 20100929
  2. CORTICOSTEROIDS [Concomitant]
  3. PROMACTA [Concomitant]
  4. NPLATE [Suspect]
     Dates: start: 20100929

REACTIONS (1)
  - DEATH [None]
